FAERS Safety Report 16275593 (Version 1)
Quarter: 2019Q2

REPORT INFORMATION
  Report Type: Spontaneous
  Country: US (occurrence: US)
  Receive Date: 20190503
  Receipt Date: 20190503
  Transmission Date: 20190711
  Serious: Yes (Life-Threatening, Hospitalization, Disabling)
  Sender: FDA-Public Use
  Company Number: None

PATIENT
  Age: 59 Year
  Sex: Male
  Weight: 91 kg

DRUGS (1)
  1. NIVOLUMAB [Suspect]
     Active Substance: NIVOLUMAB
     Indication: MALIGNANT MELANOMA STAGE III
     Dosage: ?          OTHER FREQUENCY:MONTHLY;?
     Route: 041
     Dates: start: 20181025, end: 20190416

REACTIONS (7)
  - Mental status changes [None]
  - Disturbance in attention [None]
  - Tremor [None]
  - Dizziness [None]
  - Chills [None]
  - Encephalitis [None]
  - Fall [None]

NARRATIVE: CASE EVENT DATE: 20190501
